FAERS Safety Report 5645528-1 (Version None)
Quarter: 2008Q1

REPORT INFORMATION
  Report Type: 
  Country: None (occurrence: None)
  Receive Date: 20080229
  Receipt Date: 20080222
  Transmission Date: 20080703
  Serious: No
  Sender: FDA-Public Use
  Company Number: US-BAXTER-2008BH001646

PATIENT
  Age: 51 Year
  Sex: Female
  Weight: 77 kg

DRUGS (5)
  1. HEPARIN SODIUM [Suspect]
     Indication: PLASMINOGEN ACTIVATOR INHIBITOR
     Route: 058
     Dates: start: 20070713, end: 20070812
  2. TRIIODOTHYRONINE [Concomitant]
     Indication: THYROID DISORDER
     Route: 048
     Dates: start: 20070101
  3. TYLENOL W/ CODEINE NO. 3 [Concomitant]
     Indication: PAIN
     Route: 048
     Dates: start: 19990101
  4. DARVOCET [Concomitant]
     Indication: PAIN
     Route: 048
     Dates: start: 20000101
  5. VITAMINS [Concomitant]
     Indication: VITAMIN SUPPLEMENTATION
     Route: 048
     Dates: start: 19650101

REACTIONS (4)
  - ABDOMINAL PAIN [None]
  - ASCITES [None]
  - DYSPNOEA [None]
  - INJECTION SITE BRUISING [None]
